FAERS Safety Report 8319959-5 (Version None)
Quarter: 2012Q2

REPORT INFORMATION
  Report Type: 
  Country: None (occurrence: None)
  Receive Date: 20120427
  Receipt Date: 20120421
  Transmission Date: 20120825
  Serious: Yes (Life-Threatening, Hospitalization, Other)
  Sender: FDA-Public Use
  Company Number: US-ROCHE-1059152

PATIENT
  Sex: Female
  Weight: 88.27 kg

DRUGS (14)
  1. PERCOCET [Concomitant]
     Dates: start: 20110822
  2. EFFEXOR [Concomitant]
     Dates: start: 20120305
  3. ADVAIR DISKUS 100/50 [Concomitant]
     Route: 048
     Dates: start: 20120412
  4. XOPENEX [Concomitant]
     Dates: start: 20111010
  5. AYGESTIN [Concomitant]
     Route: 048
  6. ALLEGRA [Concomitant]
     Dates: start: 20110602
  7. PRILOSEC [Concomitant]
     Dates: start: 20120416
  8. OMALIZUMAB [Suspect]
     Indication: ASTHMA
     Route: 058
     Dates: start: 20111221, end: 20120326
  9. SKELAXIN [Concomitant]
     Dates: start: 20110901
  10. FLUNISOLIDE NASAL SPRAY [Concomitant]
     Dates: start: 20120323
  11. ZANTAC [Concomitant]
     Route: 048
     Dates: start: 20111213
  12. KLONOPIN [Concomitant]
     Dates: start: 20120419
  13. SINGULAIR [Concomitant]
     Route: 048
     Dates: start: 20110412
  14. DUONEB [Concomitant]
     Dates: start: 20120203

REACTIONS (2)
  - THROMBOCYTOPENIA [None]
  - IDIOPATHIC THROMBOCYTOPENIC PURPURA [None]
